FAERS Safety Report 5120407-7 (Version None)
Quarter: 2006Q4

REPORT INFORMATION
  Report Type: 
  Country: None (occurrence: None)
  Receive Date: 20061004
  Receipt Date: 20060803
  Transmission Date: 20070319
  Serious: Yes (Other)
  Sender: FDA-Public Use
  Company Number: NL-GLAXOSMITHKLINE-B0433396A

PATIENT
  Age: 31 Year
  Sex: Female

DRUGS (13)
  1. SUMATRIPTAN SUCCINATE [Suspect]
     Indication: MIGRAINE
     Dates: start: 20030901
  2. SUMATRIPTAN SUCCINATE [Suspect]
     Dates: start: 20030901
  3. TRYPTIZOL [Concomitant]
     Indication: PROPHYLAXIS
  4. RIBOFLAVINE [Concomitant]
     Dosage: 1TAB FOUR TIMES PER DAY
     Dates: start: 20040801, end: 20040901
  5. FUSIDIC ACID [Concomitant]
     Dosage: 20MG TWICE PER DAY
     Dates: start: 20040101
  6. FEMODEEN [Concomitant]
     Dates: start: 20030901
  7. LAMICTAL [Concomitant]
     Dosage: 25MG AS DIRECTED
     Dates: start: 20040101
  8. TOPAMAX [Concomitant]
     Dosage: 100MG TWICE PER DAY
     Dates: start: 20030101, end: 20040101
  9. NEURONTIN [Concomitant]
     Dosage: 100MG THREE TIMES PER DAY
     Dates: start: 20040101
  10. AMITRIPTYLINE HCL [Concomitant]
     Dosage: 25MG AS DIRECTED
     Dates: start: 20050101
  11. GELATIN [Concomitant]
     Dates: start: 20040101
  12. CELLULOSE [Concomitant]
     Dates: start: 20040101
  13. SILICIC ACID [Concomitant]
     Dates: start: 20040101

REACTIONS (3)
  - DRUG ABUSER [None]
  - DRUG DEPENDENCE [None]
  - HEADACHE [None]
